FAERS Safety Report 7306744-6 (Version None)
Quarter: 2011Q1

REPORT INFORMATION
  Report Type: 
  Country: None (occurrence: None)
  Receive Date: 20110222
  Receipt Date: 20110208
  Transmission Date: 20110831
  Serious: Yes (Other)
  Sender: FDA-Public Use
  Company Number: CA-GENENTECH-313908

PATIENT
  Sex: Male
  Weight: 70 kg

DRUGS (1)
  1. XOLAIR [Suspect]
     Indication: ASTHMA
     Dosage: 375 MG, Q2W
     Route: 058
     Dates: start: 20070117

REACTIONS (4)
  - DYSPNOEA [None]
  - PRODUCTIVE COUGH [None]
  - PNEUMONIA [None]
  - OROPHARYNGEAL PAIN [None]
